FAERS Safety Report 16567199 (Version 1)
Quarter: 2019Q3

REPORT INFORMATION
  Report Type: Spontaneous
  Country: US (occurrence: US)
  Receive Date: 20190712
  Receipt Date: 20190712
  Transmission Date: 20191004
  Serious: Yes (Other)
  Sender: FDA-Public Use
  Company Number: US-009507513-1907USA005236

PATIENT
  Age: 36 Year
  Sex: Female
  Weight: 62 kg

DRUGS (6)
  1. GENTAMICIN. [Concomitant]
     Active Substance: GENTAMICIN
     Indication: ENDOCARDITIS STAPHYLOCOCCAL
     Dosage: 1.5 MILLIGRAM/KILOGRAM, EVERY 12 HOURS
     Route: 042
  2. GENTAMICIN. [Concomitant]
     Active Substance: GENTAMICIN
     Indication: SEPTIC EMBOLUS
     Dosage: 1 MILLIGRAM/KILOGRAM, EVERY 12 HOURS
     Route: 042
  3. LINEZOLID. [Concomitant]
     Active Substance: LINEZOLID
     Indication: ENDOCARDITIS
     Dosage: 600 MILLIGRAM, EVERY 12 HOURS
     Route: 042
  4. LINEZOLID. [Concomitant]
     Active Substance: LINEZOLID
     Indication: ENDOCARDITIS
  5. CUBICIN [Suspect]
     Active Substance: DAPTOMYCIN
     Indication: SEPTIC EMBOLUS
     Dosage: 8 MILLIGRAM/KILOGRAM, ONCE DAILY
     Route: 042
  6. CUBICIN [Suspect]
     Active Substance: DAPTOMYCIN
     Indication: ENDOCARDITIS STAPHYLOCOCCAL
     Dosage: 8 MILLIGRAM/KILOGRAM, ONCE DAILY
     Route: 042

REACTIONS (2)
  - Pathogen resistance [Unknown]
  - Treatment failure [Unknown]
